FAERS Safety Report 18767961 (Version 1)
Quarter: 2021Q1

REPORT INFORMATION
  Report Type: Spontaneous
  Country: IN (occurrence: IN)
  Receive Date: 20210121
  Receipt Date: 20210121
  Transmission Date: 20210419
  Serious: Yes (Death, Other)
  Sender: FDA-Public Use
  Company Number: IN-PFIZER INC-2019512451

PATIENT
  Age: 47 Year
  Sex: Male

DRUGS (2)
  1. SUTENT [Suspect]
     Active Substance: SUNITINIB MALATE
     Indication: METASTATIC RENAL CELL CARCINOMA
     Dosage: 25 MG, 1X/DAY FOR 30
     Route: 048
     Dates: start: 20191121
  2. SUTENT [Suspect]
     Active Substance: SUNITINIB MALATE
     Dosage: 12.5 MG, 3X/DAY
     Route: 048

REACTIONS (5)
  - Hypothyroidism [Unknown]
  - Adrenal disorder [Unknown]
  - Neoplasm progression [Unknown]
  - Death [Fatal]
  - Calculus urinary [Unknown]

NARRATIVE: CASE EVENT DATE: 20191208
